FAERS Safety Report 19741857 (Version 1)
Quarter: 2021Q3

REPORT INFORMATION
  Report Type: Spontaneous
  Country: FR (occurrence: FR)
  Receive Date: 20210824
  Receipt Date: 20210824
  Transmission Date: 20211014
  Serious: Yes (Other)
  Sender: FDA-Public Use
  Company Number: FR-MYLANLABS-2021M1054103

PATIENT
  Age: 49 Year
  Sex: Male
  Weight: 88 kg

DRUGS (11)
  1. ZOPHREN                            /00955302/ [Suspect]
     Active Substance: ONDANSETRON
     Indication: NAUSEA
     Dosage: VARIABLE
     Route: 065
     Dates: start: 20210128, end: 20210203
  2. CLINDAMYCINE                       /00166001/ [Concomitant]
     Active Substance: CLINDAMYCIN
     Indication: ANTIBIOTIC THERAPY
     Dosage: VARIABLE
     Route: 042
     Dates: start: 20210128
  3. LOVENOX [Concomitant]
     Active Substance: ENOXAPARIN SODIUM
     Dosage: 1 DOSAGE FORM, QD
     Route: 058
     Dates: start: 20210128
  4. FENTANYL. [Suspect]
     Active Substance: FENTANYL
     Indication: SEDATION
     Dosage: VARIABLE
     Route: 042
     Dates: start: 20210128, end: 20210201
  5. ACUPAN [Suspect]
     Active Substance: NEFOPAM HYDROCHLORIDE
     Indication: PAIN
     Dosage: VARIABLE
     Route: 065
     Dates: start: 20210127, end: 20210131
  6. PRIMPERAN [Suspect]
     Active Substance: METOCLOPRAMIDE HYDROCHLORIDE
     Indication: NAUSEA
     Dosage: VARIABLE
     Route: 065
     Dates: start: 20210129, end: 20210203
  7. NORADRENALINE                      /00127501/ [Concomitant]
     Active Substance: NOREPINEPHRINE
     Indication: HYPOTENSION
     Dosage: VARIABLE
     Route: 042
     Dates: start: 20210128, end: 20210129
  8. MORPHINE [Concomitant]
     Active Substance: MORPHINE
     Indication: PAIN
     Dosage: VARIABLE
     Route: 042
     Dates: start: 20210127, end: 20210128
  9. PARACETAMOL [Suspect]
     Active Substance: ACETAMINOPHEN
     Indication: PAIN
     Dosage: VARIABLE
     Route: 065
     Dates: start: 20210127, end: 20210131
  10. AUGMENTIN [Concomitant]
     Active Substance: AMOXICILLIN\CLAVULANATE POTASSIUM
     Indication: ANTIBIOTIC THERAPY
     Dosage: 6 GRAM, QD
     Route: 042
     Dates: start: 20210128
  11. PROPOFOL. [Suspect]
     Active Substance: PROPOFOL
     Indication: SEDATION
     Dosage: VARIABLE
     Route: 042
     Dates: start: 20210129, end: 20210201

REACTIONS (1)
  - Hepatic cytolysis [Recovering/Resolving]

NARRATIVE: CASE EVENT DATE: 20210202
